FAERS Safety Report 13346029 (Version 3)
Quarter: 2017Q2

REPORT INFORMATION
  Report Type: Report from Study
  Country: US (occurrence: US)
  Receive Date: 20170317
  Receipt Date: 20170412
  Transmission Date: 20170830
  Serious: Yes (Other)
  Sender: FDA-Public Use
  Company Number: US-BAYER-2017-034633

PATIENT
  Age: 52 Year
  Sex: Female

DRUGS (7)
  1. OPSUMIT [Concomitant]
     Active Substance: MACITENTAN
     Dosage: UNK
  2. ADEMPAS [Suspect]
     Active Substance: RIOCIGUAT
     Indication: PULMONARY ARTERIAL HYPERTENSION
     Dosage: 1.5 MG, TID
     Route: 048
  3. WARFARIN [Concomitant]
     Active Substance: WARFARIN
     Dosage: UNK
  4. ADEMPAS [Suspect]
     Active Substance: RIOCIGUAT
     Indication: PULMONARY ARTERIAL HYPERTENSION
     Dosage: 1 MG, TID
     Route: 048
  5. ADEMPAS [Suspect]
     Active Substance: RIOCIGUAT
     Indication: PULMONARY ARTERIAL HYPERTENSION
     Dosage: UNK
     Dates: start: 20170203
  6. REMODULIN [Suspect]
     Active Substance: TREPROSTINIL
     Dosage: UNK
  7. ADEMPAS [Suspect]
     Active Substance: RIOCIGUAT
     Indication: PULMONARY ARTERIAL HYPERTENSION
     Dosage: 0.5 MG, TID
     Route: 048

REACTIONS (20)
  - Pain in extremity [Recovering/Resolving]
  - Oxygen saturation decreased [Unknown]
  - Diarrhoea [None]
  - Neuropathy peripheral [Recovering/Resolving]
  - Headache [Unknown]
  - Cardiac flutter [Unknown]
  - Dizziness [Unknown]
  - Vision blurred [Unknown]
  - Hypotension [None]
  - Arrhythmia [Unknown]
  - Injection site swelling [None]
  - Blood pressure systolic increased [Unknown]
  - Injection site erythema [None]
  - Diarrhoea [Not Recovered/Not Resolved]
  - Erythema [None]
  - Chest pain [Unknown]
  - Injection site pain [None]
  - Cardiac flutter [Unknown]
  - Neuralgia [None]
  - Cardiac flutter [None]

NARRATIVE: CASE EVENT DATE: 201703
